FAERS Safety Report 6483620-2 (Version None)
Quarter: 2009Q4

REPORT INFORMATION
  Report Type: 
  Country: None (occurrence: None)
  Receive Date: 20091209
  Receipt Date: 20091130
  Transmission Date: 20100525
  Serious: Yes (Other)
  Sender: FDA-Public Use
  Company Number: PHHY2009BR52683

PATIENT
  Age: 84 Year
  Sex: Female
  Weight: 59 kg

DRUGS (5)
  1. EXELON [Suspect]
     Indication: DEMENTIA ALZHEIMER'S TYPE
     Dosage: 1 DF, EVERY 24 HOURS
     Route: 062
     Dates: start: 20091106, end: 20091107
  2. FORASEQ [Suspect]
     Dosage: 1 INHALATION OF EACH ACTIVE SUBSTANCE TWICE DAILY
  3. CRESTOR [Concomitant]
     Dosage: 1 DF, 1 TABLET ONCE DAILY
  4. ARADOIS H [Concomitant]
     Dosage: 1 DF, 1 TABLET ONCE DAILY.
  5. ERANZ [Concomitant]
     Dosage: 1 DF, 1 TABLET PER DAY

REACTIONS (2)
  - BRONCHITIS [None]
  - DYSPNOEA [None]
